FAERS Safety Report 4812153-1 (Version None)
Quarter: 2005Q4

REPORT INFORMATION
  Report Type: 
  Country: None (occurrence: None)
  Receive Date: 20051028
  Receipt Date: 20040902
  Transmission Date: 20060501
  Serious: No
  Sender: FDA-Public Use
  Company Number: US-GLAXOSMITHKLINE-A0524517A

PATIENT
  Age: 84 Year
  Sex: Male

DRUGS (8)
  1. ADVAIR DISKUS 100/50 [Suspect]
     Indication: ASTHMA
     Dosage: 1PUFF TWICE PER DAY
     Route: 055
     Dates: start: 20040824, end: 20040903
  2. ALBUTEROL [Concomitant]
  3. FLONASE [Concomitant]
  4. FLOMAX [Concomitant]
  5. VIOXX [Concomitant]
  6. SYNTHROID [Concomitant]
  7. DIOVAN [Concomitant]
  8. PRILOSEC [Concomitant]

REACTIONS (1)
  - DYSPHONIA [None]
